FAERS Safety Report 9015206 (Version 2)
Quarter: 2013Q1

REPORT INFORMATION
  Report Type: Spontaneous
  Country: US (occurrence: None)
  Receive Date: 20130103
  Receipt Date: 20130108
  Transmission Date: 20140127
  Serious: Yes (Other)
  Sender: FDA-Public Use
  Company Number: AUR-APL-2012-05600

PATIENT
  Age: 45 Year
  Sex: Male

DRUGS (4)
  1. ZOLPIDEM (ZOLPIDEM) [Suspect]
     Indication: MAJOR DEPRESSION
  2. PAROXETINE [Suspect]
     Indication: MAJOR DEPRESSION
     Dosage: 1D
  3. LORAZEPAM (LORAZEPAM) [Concomitant]
  4. QUETIAPINE (QUETIAPINE) (QUETIAPINE) [Concomitant]

REACTIONS (16)
  - Homicide [None]
  - Insomnia [None]
  - Restlessness [None]
  - Agitation [None]
  - Incorrect dose administered [None]
  - Incoherent [None]
  - Catatonia [None]
  - Thinking abnormal [None]
  - Convulsion [None]
  - Amnesia [None]
  - Aggression [None]
  - Stress [None]
  - Imprisonment [None]
  - Major depression [None]
  - Condition aggravated [None]
  - Drug interaction [None]
